FAERS Safety Report 24764766 (Version 1)
Quarter: 2024Q4

REPORT INFORMATION
  Report Type: Spontaneous
  Country: US (occurrence: US)
  Receive Date: 20241223
  Receipt Date: 20241223
  Transmission Date: 20250115
  Serious: No
  Sender: AMGEN
  Company Number: US-AMGEN-USASP2024249250

PATIENT
  Age: 60 Year
  Sex: Male

DRUGS (3)
  1. REPATHA [Suspect]
     Active Substance: EVOLOCUMAB
     Indication: Blood cholesterol increased
     Dosage: 140 MILLIGRAM, Q2WK
     Route: 065
     Dates: start: 201712, end: 2022
  2. REPATHA [Suspect]
     Active Substance: EVOLOCUMAB
     Dosage: 140 MILLIGRAM, Q2WK
     Route: 065
     Dates: start: 202411
  3. PRALUENT [Concomitant]
     Active Substance: ALIROCUMAB
     Indication: Cardiac disorder
     Dosage: UNK
     Dates: start: 2022

REACTIONS (8)
  - Drug intolerance [Unknown]
  - Myalgia [Unknown]
  - Muscle fatigue [Unknown]
  - Fatigue [Unknown]
  - Brain fog [Unknown]
  - Diarrhoea [Unknown]
  - Impaired work ability [Unknown]
  - Muscle spasms [Unknown]

NARRATIVE: CASE EVENT DATE: 20171201
